FAERS Safety Report 17890153 (Version 1)
Quarter: 2020Q2

REPORT INFORMATION
  Report Type: Spontaneous
  Country: NL (occurrence: NL)
  Receive Date: 20200612
  Receipt Date: 20200612
  Transmission Date: 20200714
  Serious: Yes (Life-Threatening, Hospitalization)
  Sender: FDA-Public Use
  Company Number: NL-MYLANLABS-2020M1056112

PATIENT
  Age: 63 Year
  Sex: Male

DRUGS (2)
  1. SALINE                             /00075401/ [Concomitant]
     Active Substance: SODIUM CHLORIDE
     Indication: PRODUCT USED FOR UNKNOWN INDICATION
     Dosage: DISSOLVED WITH DICLOFENAC
     Route: 042
  2. DICLOFENAC [Suspect]
     Active Substance: DICLOFENAC
     Indication: PRODUCT USED FOR UNKNOWN INDICATION
     Dosage: 75 MILLIGRAM, INTRAVENOUS DOSE OF DICLOFENAC 75 MG DISSOLVED IN 100 ML OF PHYSIOLOGICAL SALINE
     Route: 042

REACTIONS (1)
  - Kounis syndrome [Recovering/Resolving]
